FAERS Safety Report 7910220-7 (Version None)
Quarter: 2011Q4

REPORT INFORMATION
  Report Type: 
  Country: None (occurrence: None)
  Receive Date: 20111111
  Receipt Date: 20110901
  Transmission Date: 20120403
  Serious: Yes (Other)
  Sender: FDA-Public Use
  Company Number: US-ROCHE-1009467

PATIENT
  Sex: Male

DRUGS (2)
  1. GDC-0973 (MEK INHIBITOR) [Suspect]
     Indication: MALIGNANT MELANOMA
     Route: 065
  2. VEMURAFENIB [Suspect]
     Indication: MALIGNANT MELANOMA
     Route: 065

REACTIONS (1)
  - SPINAL CORD COMPRESSION [None]
